FAERS Safety Report 17699268 (Version 2)
Quarter: 2020Q2

REPORT INFORMATION
  Report Type: Report from Study
  Country: None (occurrence: DE)
  Receive Date: 20200423
  Receipt Date: 20200428
  Transmission Date: 20200714
  Serious: Yes (Death)
  Sender: FDA-Public Use
  Company Number: DE-BAUSCH-BL-2020-011941

PATIENT
  Age: 84 Year
  Sex: Male

DRUGS (1)
  1. PREDNISOLONE. [Suspect]
     Active Substance: PREDNISOLONE
     Indication: PITYRIASIS RUBRA PILARIS
     Dosage: SYSTEMIC CORTICOSTEROID TREATMENT
     Route: 065

REACTIONS (2)
  - Pneumonia [Fatal]
  - Drug ineffective [Unknown]
